FAERS Safety Report 4641090-0 (Version None)
Quarter: 2005Q2

REPORT INFORMATION
  Report Type: 
  Country: None (occurrence: None)
  Receive Date: 20050419
  Receipt Date: 20050419
  Transmission Date: 20051028
  Serious: No
  Sender: FDA-Public Use
  Company Number: None

PATIENT
  Age: 56 Year
  Sex: Female
  Weight: 104.7809 kg

DRUGS (30)
  1. REMICADE [Suspect]
     Indication: RHEUMATOID ARTHRITIS
     Dosage: 300 MG IV Q 8 WKS
     Route: 042
     Dates: start: 20030124
  2. REMICADE [Suspect]
     Indication: RHEUMATOID ARTHRITIS
     Dosage: 300 MG IV Q 8 WKS
     Route: 042
     Dates: start: 20030206
  3. REMICADE [Suspect]
     Indication: RHEUMATOID ARTHRITIS
     Dosage: 300 MG IV Q 8 WKS
     Route: 042
     Dates: start: 20030306
  4. REMICADE [Suspect]
     Indication: RHEUMATOID ARTHRITIS
     Dosage: 300 MG IV Q 8 WKS
     Route: 042
     Dates: start: 20030501
  5. REMICADE [Suspect]
     Indication: RHEUMATOID ARTHRITIS
     Dosage: 300 MG IV Q 8 WKS
     Route: 042
     Dates: start: 20030626
  6. REMICADE [Suspect]
     Indication: RHEUMATOID ARTHRITIS
     Dosage: 300 MG IV Q 8 WKS
     Route: 042
     Dates: start: 20030811
  7. REMICADE [Suspect]
     Indication: RHEUMATOID ARTHRITIS
     Dosage: 300 MG IV Q 8 WKS
     Route: 042
     Dates: start: 20031004
  8. REMICADE [Suspect]
     Indication: RHEUMATOID ARTHRITIS
     Dosage: 300 MG IV Q 8 WKS
     Route: 042
     Dates: start: 20031125
  9. REMICADE [Suspect]
     Indication: RHEUMATOID ARTHRITIS
     Dosage: 300 MG IV Q 8 WKS
     Route: 042
     Dates: start: 20040130
  10. REMICADE [Suspect]
     Indication: RHEUMATOID ARTHRITIS
     Dosage: 300 MG IV Q 8 WKS
     Route: 042
     Dates: start: 20040323
  11. REMICADE [Suspect]
     Indication: RHEUMATOID ARTHRITIS
     Dosage: 300 MG IV Q 8 WKS
     Route: 042
     Dates: start: 20040520
  12. REMICADE [Suspect]
     Indication: RHEUMATOID ARTHRITIS
     Dosage: 300 MG IV Q 8 WKS
     Route: 042
     Dates: start: 20040715
  13. REMICADE [Suspect]
     Indication: RHEUMATOID ARTHRITIS
     Dosage: 300 MG IV Q 8 WKS
     Route: 042
     Dates: start: 20040903
  14. REMICADE [Suspect]
     Indication: RHEUMATOID ARTHRITIS
     Dosage: 300 MG IV Q 8 WKS
     Route: 042
     Dates: start: 20041029
  15. REMICADE [Suspect]
     Indication: RHEUMATOID ARTHRITIS
     Dosage: 300 MG IV Q 8 WKS
     Route: 042
     Dates: start: 20041221
  16. REMICADE [Suspect]
     Indication: RHEUMATOID ARTHRITIS
     Dosage: 300 MG IV Q 8 WKS
     Route: 042
     Dates: start: 20050217
  17. REMICADE [Suspect]
  18. REMICADE [Suspect]
  19. REMICADE [Suspect]
  20. REMICADE [Suspect]
  21. REMICADE [Suspect]
  22. REMICADE [Suspect]
  23. REMICADE [Suspect]
  24. REMICADE [Suspect]
  25. REMICADE [Suspect]
  26. REMICADE [Suspect]
  27. REMICADE [Suspect]
  28. REMICADE [Suspect]
  29. REMICADE [Suspect]
  30. REMICADE [Suspect]

REACTIONS (2)
  - PLEURAL EFFUSION [None]
  - PLEURISY [None]
